FAERS Safety Report 14475332 (Version 3)
Quarter: 2018Q1

REPORT INFORMATION
  Report Type: Spontaneous
  Country: FR (occurrence: FR)
  Receive Date: 20180201
  Receipt Date: 20180208
  Transmission Date: 20180509
  Serious: Yes (Death, Other)
  Sender: FDA-Public Use
  Company Number: FR-PFIZER INC-2018042201

PATIENT
  Age: 72 Year
  Sex: Male
  Weight: 112 kg

DRUGS (8)
  1. ROCURONIUM BROMIDE. [Suspect]
     Active Substance: ROCURONIUM BROMIDE
     Indication: ANAESTHESIA
     Dosage: UNK
     Dates: start: 20171112, end: 20171112
  2. SUFENTANIL [Concomitant]
     Active Substance: SUFENTANIL
     Indication: ANAESTHESIA
     Dosage: 15 GAMMA IN DIRECT IV
     Route: 042
  3. BRIDION [Suspect]
     Active Substance: SUGAMMADEX
     Indication: ANAESTHESIA
     Dosage: UNK
     Dates: start: 20171112, end: 20171112
  4. CEFAZOLIN [Concomitant]
     Active Substance: CEFAZOLIN
     Indication: PROPHYLAXIS
     Dosage: 2 G, SLOW INTRAVENOUS
     Route: 042
  5. PROPOFOL. [Concomitant]
     Active Substance: PROPOFOL
     Indication: ANAESTHESIA
     Dosage: 200 MG, UNK
  6. ROCURONIUM BROMIDE. [Suspect]
     Active Substance: ROCURONIUM BROMIDE
     Indication: NEUROMUSCULAR BLOCKING THERAPY
  7. CEFAZOLIN [Concomitant]
     Active Substance: CEFAZOLIN
     Indication: ANAESTHESIA
     Dosage: 2 G, SLOW INTRAVENOUS
     Route: 042
  8. ROCURONIUM BROMIDE. [Suspect]
     Active Substance: ROCURONIUM BROMIDE
     Indication: ENDOTRACHEAL INTUBATION
     Dosage: UNK
     Route: 042
     Dates: start: 20171114, end: 20171114

REACTIONS (3)
  - Cardiac arrest [Fatal]
  - Anaphylactic shock [Fatal]
  - Urticaria [Fatal]

NARRATIVE: CASE EVENT DATE: 20171114
